FAERS Safety Report 10549564 (Version 3)
Quarter: 2014Q4

REPORT INFORMATION
  Report Type: Spontaneous
  Country: GH (occurrence: GH)
  Receive Date: 20141028
  Receipt Date: 20141204
  Transmission Date: 20150529
  Serious: Yes (Death, Other)
  Sender: FDA-Public Use
  Company Number: GH-GILEAD-2014-0116832

PATIENT
  Sex: Male

DRUGS (1)
  1. TENOFOVIR DISOPROXIL FUMARATE [Suspect]
     Active Substance: TENOFOVIR DISOPROXIL FUMARATE
     Indication: HEPATITIS B
     Route: 065

REACTIONS (2)
  - Abdominal pain upper [Unknown]
  - Death [Fatal]
